FAERS Safety Report 5527762-4 (Version None)
Quarter: 2007Q4

REPORT INFORMATION
  Report Type: 
  Country: None (occurrence: None)
  Receive Date: 20071128
  Receipt Date: 20071115
  Transmission Date: 20080405
  Serious: Yes (Hospitalization, Other)
  Sender: FDA-Public Use
  Company Number: US-ELI_LILLY_AND_COMPANY-US200711003676

PATIENT
  Sex: Female

DRUGS (2)
  1. HUMALOG [Suspect]
     Dosage: UNK, 3/D
     Route: 065
  2. LEVEMIR [Concomitant]
     Dosage: UNK, 2/D
     Route: 065
     Dates: start: 20040101

REACTIONS (8)
  - ABNORMAL BEHAVIOUR [None]
  - BLOOD GLUCOSE INCREASED [None]
  - FALL [None]
  - GAIT DISTURBANCE [None]
  - HIP FRACTURE [None]
  - LIVER TRANSPLANT [None]
  - MEMORY IMPAIRMENT [None]
  - UPPER LIMB FRACTURE [None]
